FAERS Safety Report 5679160-0 (Version None)
Quarter: 2008Q1

REPORT INFORMATION
  Report Type: 
  Country: None (occurrence: None)
  Receive Date: 20080321
  Receipt Date: 20080307
  Transmission Date: 20080703
  Serious: Yes (Disabling, Other)
  Sender: FDA-Public Use
  Company Number: 2008S1003854

PATIENT
  Sex: Female

DRUGS (3)
  1. PAROXETINE HYDROCHLORIDE [Suspect]
     Dosage: ORAL, ORAL
     Route: 048
     Dates: start: 20060101
  2. PAROXETINE HYDROCHLORIDE [Suspect]
     Dosage: ORAL, ORAL
     Route: 048
     Dates: start: 20060301
  3. DEROXAT [Concomitant]

REACTIONS (6)
  - FALL [None]
  - LOSS OF CONSCIOUSNESS [None]
  - MULTIPLE FRACTURES [None]
  - NAUSEA [None]
  - PHARMACEUTICAL PRODUCT COMPLAINT [None]
  - VERTIGO [None]
